FAERS Safety Report 6409486-4 (Version None)
Quarter: 2009Q4

REPORT INFORMATION
  Report Type: 
  Country: None (occurrence: None)
  Receive Date: 20091013
  Receipt Date: 20091005
  Transmission Date: 20100525
  Serious: Yes (Life-Threatening, Hospitalization, Disabling)
  Sender: FDA-Public Use
  Company Number: 2009020803

PATIENT
  Sex: Female

DRUGS (4)
  1. VIVAGLOBIN [Suspect]
     Indication: IMMUNODEFICIENCY COMMON VARIABLE
     Dosage: (4.16 GRAMS WEEKLY SUBCUTANEOUS), (SUBCUTANEOUS)
     Route: 058
     Dates: start: 20071001, end: 20090801
  2. VIVAGLOBIN [Suspect]
     Indication: IMMUNODEFICIENCY COMMON VARIABLE
     Dosage: (4.16 GRAMS WEEKLY SUBCUTANEOUS), (SUBCUTANEOUS)
     Route: 058
     Dates: start: 20090801
  3. AUGMENTIN (AUGMENTIN /00756801/) [Concomitant]
  4. ADVIL (IBUPROFEN) [Concomitant]

REACTIONS (5)
  - EDUCATIONAL PROBLEM [None]
  - GLOMERULONEPHRITIS MINIMAL LESION [None]
  - NEPHROTIC SYNDROME [None]
  - RESPIRATORY TRACT INFECTION [None]
  - SINUSITIS [None]
